FAERS Safety Report 11369158 (Version 2)
Quarter: 2015Q3

REPORT INFORMATION
  Report Type: Report from Study
  Country: BR (occurrence: BR)
  Receive Date: 20150812
  Receipt Date: 20150825
  Transmission Date: 20151125
  Serious: Yes (Other)
  Sender: FDA-Public Use
  Company Number: PHHY2015BR014728

PATIENT
  Age: 53 Year
  Sex: Female
  Weight: 61 kg

DRUGS (4)
  1. ACLASTA [Suspect]
     Active Substance: ZOLEDRONIC ACID
     Dosage: 5 MG, ONCE A YEAR
     Route: 042
     Dates: start: 201502
  2. ACLASTA [Suspect]
     Active Substance: ZOLEDRONIC ACID
     Dosage: 5 MG, ONCE A YEAR
     Route: 042
     Dates: start: 201207
  3. ACLASTA [Suspect]
     Active Substance: ZOLEDRONIC ACID
     Dosage: UNK
     Route: 042
     Dates: start: 201508
  4. ACLASTA [Suspect]
     Active Substance: ZOLEDRONIC ACID
     Indication: OSTEOPOROSIS
     Route: 042

REACTIONS (10)
  - Thoracic vertebral fracture [Recovering/Resolving]
  - Fractured coccyx [Not Recovered/Not Resolved]
  - Sinusitis [Recovered/Resolved]
  - Spinal column injury [Not Recovered/Not Resolved]
  - Spinal pain [Not Recovered/Not Resolved]
  - Migraine [Recovered/Resolved]
  - Pharyngitis [Recovered/Resolved]
  - Dizziness [Recovered/Resolved]
  - Cough [Recovered/Resolved]
  - Influenza [Recovered/Resolved]

NARRATIVE: CASE EVENT DATE: 201501
